FAERS Safety Report 7333491-7 (Version None)
Quarter: 2011Q1

REPORT INFORMATION
  Report Type: 
  Country: None (occurrence: None)
  Receive Date: 20110304
  Receipt Date: 20110228
  Transmission Date: 20110831
  Serious: Yes (Other)
  Sender: FDA-Public Use
  Company Number: FI-PFIZER INC-2011042616

PATIENT
  Age: 41 Year
  Sex: Female

DRUGS (22)
  1. LYRICA [Suspect]
     Indication: NEURALGIA
     Dosage: 100MG DAILY
     Route: 048
     Dates: start: 20101201, end: 20101215
  2. ATARAX [Concomitant]
     Dosage: 25MG
     Route: 048
  3. FURESIS [Concomitant]
     Dosage: 20MG
  4. IMOVANE [Concomitant]
     Dosage: 7,5MG
  5. INTRON A [Concomitant]
     Dosage: 30 MILJ.IU
  6. MYCOSTATIN [Concomitant]
     Dosage: 100000 IU/ML, UNK
  7. OXYNORM [Concomitant]
     Dosage: 10 MG
  8. TRAMADOL HCL [Concomitant]
     Dosage: 100 MG AND 200MG
  9. DIFLUCAN [Concomitant]
     Dosage: 150MG
  10. BURANA [Concomitant]
     Dosage: 600MG
  11. QUETIAPINE FUMARATE [Concomitant]
     Dosage: 25MG
  12. OXYCONTIN [Concomitant]
     Dosage: 40 MG
  13. PANACOD [Concomitant]
  14. SERETIDE EVOHALER [Concomitant]
     Dosage: 25/125 MIKROGRAMS/DOSE
  15. PROPRAL [Concomitant]
     Dosage: 10 MG
  16. PANADOL FORTE [Concomitant]
     Dosage: 1 G
  17. PANTOPRAZOL [Concomitant]
     Dosage: 40 MG
  18. XANOR [Concomitant]
     Dosage: 0,25 MG
  19. NITROFUR-C [Concomitant]
     Dosage: 75MG
  20. ONDANSETRON [Concomitant]
     Dosage: 8 MG
  21. NALOXONE/OXYCODONE [Concomitant]
     Dosage: 5MG/2,5MG
  22. VENTOLIN DISKUS [Concomitant]
     Dosage: 200 MIKROGRAMS/DOSE

REACTIONS (5)
  - CONFUSIONAL STATE [None]
  - SOMNOLENCE [None]
  - HALLUCINATION, VISUAL [None]
  - PSYCHOTIC DISORDER [None]
  - RESTLESSNESS [None]
